FAERS Safety Report 6992662-X (Version None)
Quarter: 2010Q3

REPORT INFORMATION
  Report Type: 
  Country: None (occurrence: None)
  Receive Date: 20100915
  Receipt Date: 20100906
  Transmission Date: 20110219
  Serious: Yes (Hospitalization)
  Sender: FDA-Public Use
  Company Number: TIF2010A00084

PATIENT
  Age: 80 Year
  Sex: Male

DRUGS (6)
  1. LANSOPRAZOLE [Suspect]
     Indication: CONSTIPATION
     Dosage: 30 MG (30 MG, 1 IN 1 D) ORAL
     Route: 048
     Dates: start: 20080818
  2. LASIX [Concomitant]
  3. COUMADIN [Concomitant]
  4. CARVEDILOL [Concomitant]
  5. MICARDIS [Concomitant]
  6. SIMVASTATIN [Concomitant]

REACTIONS (5)
  - BLOOD POTASSIUM DECREASED [None]
  - BLOOD SODIUM DECREASED [None]
  - CARDIAC FAILURE [None]
  - ILEUS PARALYTIC [None]
  - INAPPROPRIATE ANTIDIURETIC HORMONE SECRETION [None]
